FAERS Safety Report 5552555-1 (Version None)
Quarter: 2007Q4

REPORT INFORMATION
  Report Type: 
  Country: None (occurrence: None)
  Receive Date: 20071204
  Receipt Date: 20071121
  Transmission Date: 20080405
  Serious: Yes (Death, Hospitalization, Other)
  Sender: FDA-Public Use
  Company Number: WAES 0708USA04134

PATIENT
  Age: 18 Year
  Sex: Female
  Weight: 51.7101 kg

DRUGS (11)
  1. CAP VORINOSTAT UNK [Suspect]
     Indication: ACUTE MYELOID LEUKAEMIA
     Dosage: 400 MG/DAILY/PO
     Route: 048
     Dates: start: 20070726, end: 20070801
  2. CAP VORINOSTAT UNK [Suspect]
     Indication: ACUTE MYELOID LEUKAEMIA
     Dosage: 400 MG/DAILY/PO
     Route: 048
     Dates: start: 20070825, end: 20070831
  3. DECITABINE UNK [Suspect]
     Indication: ACUTE MYELOID LEUKAEMIA
     Dosage: 20 MG/M [2]/DAILY/IV
     Route: 042
     Dates: start: 20070721, end: 20070725
  4. DECITABINE UNK [Suspect]
     Indication: ACUTE MYELOID LEUKAEMIA
     Dosage: 20 MG/M [2]/DAILY/IV
     Route: 042
     Dates: start: 20070820, end: 20070824
  5. DILAUDID [Concomitant]
  6. DURAGESIC-100 [Concomitant]
  7. NORVASC [Concomitant]
  8. SENOKOT [Concomitant]
  9. ZOFRAN [Concomitant]
  10. MAGNESIUM OXIDE [Concomitant]
  11. POTASSIUM CHLORIDE [Concomitant]

REACTIONS (12)
  - ACUTE MYELOID LEUKAEMIA [None]
  - CAECITIS [None]
  - CELLULITIS [None]
  - CHEILITIS [None]
  - ERYTHEMA [None]
  - FEBRILE NEUTROPENIA [None]
  - HERPES SIMPLEX [None]
  - INSOMNIA [None]
  - LIP SWELLING [None]
  - MALIGNANT NEOPLASM PROGRESSION [None]
  - ORAL INTAKE REDUCED [None]
  - WEIGHT DECREASED [None]
